FAERS Safety Report 16675712 (Version 1)
Quarter: 2019Q3

REPORT INFORMATION
  Report Type: Spontaneous
  Country: US (occurrence: US)
  Receive Date: 20190806
  Receipt Date: 20190806
  Transmission Date: 20191004
  Serious: Yes (Other)
  Sender: FDA-Public Use
  Company Number: US-ASTRAZENECA-2019SF10670

PATIENT
  Age: 774 Month
  Sex: Female
  Weight: 98.9 kg

DRUGS (2)
  1. LYNPARZA [Suspect]
     Active Substance: OLAPARIB
     Indication: OVARIAN CANCER
     Route: 048
     Dates: start: 201903
  2. LYNPARZA [Suspect]
     Active Substance: OLAPARIB
     Indication: OVARIAN CANCER
     Dosage: 100 MG IN THE MORNING 200 MG IN THE EVENING
     Route: 048
     Dates: start: 20190412

REACTIONS (7)
  - Bacterial infection [Unknown]
  - Pain [Unknown]
  - Dysphagia [Unknown]
  - Haemoglobin decreased [Unknown]
  - Pain in extremity [Unknown]
  - Muscle spasms [Unknown]
  - Carbohydrate antigen 125 increased [Unknown]

NARRATIVE: CASE EVENT DATE: 201903
